APPROVED DRUG PRODUCT: CETIRIZINE HYDROCHLORIDE HIVES RELIEF
Active Ingredient: CETIRIZINE HYDROCHLORIDE
Strength: 10MG
Dosage Form/Route: TABLET;ORAL
Application: A090760 | Product #004
Applicant: AUROBINDO PHARMA LTD
Approved: Aug 5, 2015 | RLD: No | RS: No | Type: OTC